FAERS Safety Report 8523674-2 (Version None)
Quarter: 2012Q3

REPORT INFORMATION
  Report Type: 
  Country: None (occurrence: None)
  Receive Date: 20120720
  Receipt Date: 20120709
  Transmission Date: 20120928
  Serious: Yes (Hospitalization, Other)
  Sender: FDA-Public Use
  Company Number: US-BAYER-2012-061552

PATIENT
  Age: 74 Year
  Sex: Male

DRUGS (4)
  1. GLUCOPHAGE [Concomitant]
     Indication: DIABETES MELLITUS
  2. NEXAVAR [Suspect]
     Indication: HEPATIC NEOPLASM MALIGNANT
     Dosage: DAILY DOSE 600 MG (200 IN AM 400 IN PM)
     Dates: start: 20120611, end: 20120622
  3. NEXAVAR [Suspect]
     Dosage: 200 MG, BID
     Route: 048
     Dates: start: 20120702, end: 20120705
  4. NEXAVAR [Suspect]
     Dosage: 400 MG, BID
     Route: 048
     Dates: start: 20120706, end: 20120709

REACTIONS (9)
  - HYPOAESTHESIA [None]
  - MALAISE [None]
  - GASTROOESOPHAGEAL REFLUX DISEASE [None]
  - CHEST DISCOMFORT [None]
  - PYREXIA [None]
  - ABDOMINAL DISTENSION [None]
  - DISORIENTATION [None]
  - DYSPHAGIA [None]
  - FATIGUE [None]
